FAERS Safety Report 9485351 (Version 3)
Quarter: 2013Q3

REPORT INFORMATION
  Report Type: Report from Study
  Country: FR (occurrence: FR)
  Receive Date: 20130828
  Receipt Date: 20130913
  Transmission Date: 20140515
  Serious: Yes (Hospitalization)
  Sender: FDA-Public Use
  Company Number: FR-ROCHE-1264730

PATIENT
  Age: 44 Year
  Sex: Female
  Weight: 50 kg

DRUGS (3)
  1. TRASTUZUMAB [Suspect]
     Indication: BREAST CANCER
     Dosage: LAST DOSE PRIOR TO SAE WAS TAKEN ON 12/AUG/2013
     Route: 042
     Dates: start: 20130812
  2. TAXOTERE [Suspect]
     Indication: BREAST CANCER
     Dosage: LAST DOSE PRIOR TO SAE WAS TAKEN ON 13/AUG/2013
     Route: 042
     Dates: start: 20130813
  3. PERTUZUMAB [Suspect]
     Indication: BREAST CANCER
     Dosage: LAST DOSE PRIOR TO SAE WAS TAKEN ON 13/AUG/2013
     Route: 042
     Dates: start: 20130813

REACTIONS (1)
  - Febrile bone marrow aplasia [Not Recovered/Not Resolved]
